FAERS Safety Report 21367501 (Version 1)
Quarter: 2022Q3

REPORT INFORMATION
  Report Type: Spontaneous
  Country: PT (occurrence: PT)
  Receive Date: 20220923
  Receipt Date: 20220923
  Transmission Date: 20221027
  Serious: Yes (Other)
  Sender: FDA-Public Use
  Company Number: None

PATIENT
  Age: 37 Year
  Sex: Female

DRUGS (3)
  1. CAPECITABINE [Suspect]
     Active Substance: CAPECITABINE
     Indication: Breast cancer
     Dosage: 1150 MG TWICE DAILY FOR 14 DAYS IN 21-DAY CYCLES, UNIT DOSE: 2300 MG , FREQUENCY TIME : 1 DAY, THERA
     Dates: start: 20200930
  2. TUKYSA [Suspect]
     Active Substance: TUCATINIB
     Indication: Breast cancer
     Dosage: UNIT DOSE: 300 MG, FREQUENCY TIME : 1 DAY, THERAPY END DATE : NASK, BREAST CARCINOMA
     Dates: start: 20220711
  3. HERZUMA [Suspect]
     Active Substance: TRASTUZUMAB-PKRB
     Indication: Breast cancer
     Dosage: UNIT DOSE: 354 MG , FREQUENCY TIME : 1 CYCLICAL, THERAPY END DATE : NASK
     Dates: start: 20200930

REACTIONS (4)
  - Alanine aminotransferase increased [Not Recovered/Not Resolved]
  - Aspartate aminotransferase increased [Not Recovered/Not Resolved]
  - Gamma-glutamyltransferase increased [Not Recovered/Not Resolved]
  - Lymphopenia [Not Recovered/Not Resolved]

NARRATIVE: CASE EVENT DATE: 20211230
